FAERS Safety Report 6794778-X (Version None)
Quarter: 2010Q2

REPORT INFORMATION
  Report Type: 
  Country: None (occurrence: None)
  Receive Date: 20100624
  Receipt Date: 20100624
  Transmission Date: 20101027
  Serious: Yes (Life-Threatening, Hospitalization, Disabling)
  Sender: FDA-Public Use
  Company Number: None

PATIENT
  Age: 50 Year
  Sex: Female
  Weight: 82.5 kg

DRUGS (1)
  1. GEMCITABINE 10MG LILLY [Suspect]
     Indication: BREAST CANCER
     Dosage: 1800MG WEEKLY IV BOLUS
     Route: 040
     Dates: start: 20080501, end: 20100501

REACTIONS (3)
  - ANAEMIA [None]
  - RENAL FAILURE [None]
  - THROMBOCYTOPENIA [None]
